FAERS Safety Report 15665808 (Version 1)
Quarter: 2018Q4

REPORT INFORMATION
  Report Type: Spontaneous
  Country: GB (occurrence: GB)
  Receive Date: 20181128
  Receipt Date: 20181128
  Transmission Date: 20190205
  Serious: Yes (Other)
  Sender: FDA-Public Use
  Company Number: PHHY2018GB166352

PATIENT
  Age: 13 Year

DRUGS (6)
  1. ELTROMBOPAG [Suspect]
     Active Substance: ELTROMBOPAG
     Dosage: 25 MG, QD
     Route: 065
     Dates: start: 201806, end: 201811
  2. ELTROMBOPAG [Suspect]
     Active Substance: ELTROMBOPAG
     Dosage: 25 MG, QD (DAILY)
     Route: 065
     Dates: start: 201803, end: 201805
  3. ELTROMBOPAG [Suspect]
     Active Substance: ELTROMBOPAG
     Dosage: 50 MG, QD (MONDAY TO FRIDAY)
     Route: 065
     Dates: start: 201801, end: 201802
  4. ELTROMBOPAG [Suspect]
     Active Substance: ELTROMBOPAG
     Indication: IMMUNE THROMBOCYTOPENIC PURPURA
     Dosage: 50 MG, QD
     Route: 065
     Dates: start: 20170217, end: 201712
  5. ELTROMBOPAG [Suspect]
     Active Substance: ELTROMBOPAG
     Dosage: 50 MG, QOD
     Route: 065
     Dates: start: 201806, end: 201811
  6. ELTROMBOPAG [Suspect]
     Active Substance: ELTROMBOPAG
     Dosage: 50 MG, QD (DAILY)
     Route: 065
     Dates: start: 201803, end: 201805

REACTIONS (3)
  - Epistaxis [Unknown]
  - Cerebral haemorrhage [Unknown]
  - Arteriovenous malformation [Unknown]

NARRATIVE: CASE EVENT DATE: 201712
